FAERS Safety Report 20405151 (Version 3)
Quarter: 2022Q2

REPORT INFORMATION
  Report Type: Spontaneous
  Country: US (occurrence: US)
  Receive Date: 20220131
  Receipt Date: 20220413
  Transmission Date: 20220721
  Serious: Yes (Other)
  Sender: FDA-Public Use
  Company Number: US-PFIZER INC-202101371900

PATIENT
  Age: 26 Year
  Sex: Female

DRUGS (2)
  1. SOMAVERT [Suspect]
     Active Substance: PEGVISOMANT
     Dosage: 10 MG
     Dates: start: 20211006, end: 20211213
  2. SOMAVERT [Suspect]
     Active Substance: PEGVISOMANT
     Dosage: 10 MG, DAILY

REACTIONS (4)
  - Hepatic failure [Unknown]
  - Lymphadenopathy [Recovered/Resolved]
  - Lymph node pain [Unknown]
  - Nausea [Unknown]

NARRATIVE: CASE EVENT DATE: 20211001
